FAERS Safety Report 9294866 (Version 1)
Quarter: 2013Q2

REPORT INFORMATION
  Report Type: Report from Study
  Country: ES (occurrence: ES)
  Receive Date: 20130517
  Receipt Date: 20130517
  Transmission Date: 20140414
  Serious: Yes (Other)
  Sender: FDA-Public Use
  Company Number: ES-ROCHE-CID000000002418578

PATIENT
  Age: 64 Year
  Sex: Male

DRUGS (7)
  1. MYCOPHENOLATE MOFETIL [Suspect]
     Indication: PRODUCT USED FOR UNKNOWN INDICATION
     Route: 065
  2. ACENOCUMAROL WZF [Concomitant]
     Indication: HAEMOSTASIS
  3. CALCIUM ACETATE [Concomitant]
     Route: 065
  4. BASILIXIMAB [Concomitant]
  5. METHYLPREDNISOLONE [Concomitant]
  6. PREDNISONE [Concomitant]
  7. TACROLIMUS [Concomitant]

REACTIONS (1)
  - Transplant rejection [Unknown]
